FAERS Safety Report 6897990-4 (Version None)
Quarter: 2010Q3

REPORT INFORMATION
  Report Type: 
  Country: None (occurrence: None)
  Receive Date: 20100802
  Receipt Date: 20070830
  Transmission Date: 20110219
  Serious: Yes (Other)
  Sender: FDA-Public Use
  Company Number: US-PFIZER INC-2007059558

PATIENT
  Sex: Female
  Weight: 58.1 kg

DRUGS (8)
  1. LYRICA [Suspect]
     Indication: NEUROPATHY PERIPHERAL
     Dates: start: 20070623, end: 20070626
  2. LYRICA [Suspect]
     Indication: HERPES ZOSTER
  3. THYROID TAB [Concomitant]
  4. HYDROCHLOROTHIAZIDE [Concomitant]
  5. TRANDATE [Concomitant]
  6. FOSAMAX [Concomitant]
  7. CALCIUM [Concomitant]
  8. DIPYRIDAMOLE [Concomitant]

REACTIONS (4)
  - BLINDNESS TRANSIENT [None]
  - MYOPIA [None]
  - VISION BLURRED [None]
  - VISUAL ACUITY REDUCED [None]
